FAERS Safety Report 16480692 (Version 2)
Quarter: 2019Q3

REPORT INFORMATION
  Report Type: Spontaneous
  Country: CR (occurrence: CR)
  Receive Date: 20190626
  Receipt Date: 20190702
  Transmission Date: 20191004
  Serious: Yes (Death, Other)
  Sender: FDA-Public Use
  Company Number: CR-ROCHE-2343565

PATIENT
  Age: 60 Year
  Sex: Female
  Weight: 60 kg

DRUGS (2)
  1. TOCILIZUMAB. [Suspect]
     Active Substance: TOCILIZUMAB
     Indication: RHEUMATOID ARTHRITIS
     Route: 042
     Dates: start: 201904, end: 201905
  2. PREDNISOLONE. [Concomitant]
     Active Substance: PREDNISOLONE
     Indication: RHEUMATOID ARTHRITIS
     Dosage: EACH DAY
     Route: 048
     Dates: end: 20190603

REACTIONS (5)
  - Hip fracture [Unknown]
  - Spinal fracture [Unknown]
  - Fall [Unknown]
  - Death [Fatal]
  - Back pain [Unknown]

NARRATIVE: CASE EVENT DATE: 20190515
